FAERS Safety Report 6915073-1 (Version None)
Quarter: 2010Q3

REPORT INFORMATION
  Report Type: 
  Country: None (occurrence: None)
  Receive Date: 20100809
  Receipt Date: 20100728
  Transmission Date: 20110219
  Serious: Yes (Hospitalization)
  Sender: FDA-Public Use
  Company Number: GB-GILEAD-E2B_00000806

PATIENT
  Age: 64 Year
  Sex: Female

DRUGS (9)
  1. AMBRISENTAN [Suspect]
     Indication: PULMONARY ARTERIAL HYPERTENSION
     Dosage: 5MG PER DAY
     Route: 065
     Dates: start: 20091028
  2. SILDENAFIL CITRATE [Concomitant]
     Dosage: 50MG THREE TIMES PER DAY
     Route: 065
  3. SPIRONOLACTONE [Concomitant]
  4. FUROSEMIDE [Concomitant]
  5. DIGOXIN [Concomitant]
  6. SIMVASTATIN [Concomitant]
  7. ENALAPRIL [Concomitant]
  8. ADCAL D3 [Concomitant]
  9. WARFARIN [Concomitant]

REACTIONS (2)
  - BLOOD CREATININE INCREASED [None]
  - FLUID RETENTION [None]
